FAERS Safety Report 14773831 (Version 1)
Quarter: 2018Q2

REPORT INFORMATION
  Report Type: Report from Study
  Country: IL (occurrence: IL)
  Receive Date: 20180418
  Receipt Date: 20180418
  Transmission Date: 20180711
  Serious: Yes (Death, Life-Threatening, Hospitalization, Other)
  Sender: FDA-Public Use
  Company Number: IL-BRISTOL-MYERS SQUIBB COMPANY-BMS-2018-033939

PATIENT
  Age: 85 Year
  Sex: Female
  Weight: 67 kg

DRUGS (1)
  1. APIXABAN [Suspect]
     Active Substance: APIXABAN
     Indication: CEREBROVASCULAR ACCIDENT PROPHYLAXIS
     Dosage: 2.5 MG, BID
     Route: 048
     Dates: start: 20160419

REACTIONS (3)
  - Renal impairment [Unknown]
  - Sepsis [Fatal]
  - Bone disorder [Unknown]

NARRATIVE: CASE EVENT DATE: 20160426
